FAERS Safety Report 4751494-3 (Version None)
Quarter: 2005Q3

REPORT INFORMATION
  Report Type: 
  Country: None (occurrence: None)
  Receive Date: 20050822
  Receipt Date: 20050809
  Transmission Date: 20060218
  Serious: Yes (Hospitalization)
  Sender: FDA-Public Use
  Company Number: 2005109162

PATIENT
  Age: 21 Month
  Sex: Male
  Weight: 11 kg

DRUGS (5)
  1. UNASYN [Suspect]
     Indication: PYREXIA
     Dosage: 1200 MG (600 MG, BID) , INTRAVENOUS
     Route: 042
     Dates: start: 20050323, end: 20050329
  2. UNASYN [Suspect]
     Indication: PYREXIA
     Dosage: 1200 MG (600 MG, BID) , INTRAVENOUS
     Route: 042
     Dates: start: 20050721, end: 20050722
  3. DIAPP (DIAZEPAM) [Concomitant]
  4. SOLDEM 3A (CARBOHYDRATES NOS, POTASSIUM CHLORIDE, SODIUM CHLORIDE, SOD [Concomitant]
  5. ANHIBA (PARACETAMOL) [Concomitant]

REACTIONS (8)
  - ASPARTATE AMINOTRANSFERASE INCREASED [None]
  - COAGULOPATHY [None]
  - DRUG HYPERSENSITIVITY [None]
  - EXANTHEMA SUBITUM [None]
  - FEBRILE CONVULSION [None]
  - HAEMATEMESIS [None]
  - PYREXIA [None]
  - STRESS [None]
